FAERS Safety Report 7496642-X (Version None)
Quarter: 2011Q2

REPORT INFORMATION
  Report Type: 
  Country: None (occurrence: None)
  Receive Date: 20110523
  Receipt Date: 20110511
  Transmission Date: 20111010
  Serious: Yes (Hospitalization)
  Sender: FDA-Public Use
  Company Number: A0808099A

PATIENT
  Age: 67 Year
  Sex: Female
  Weight: 96.8 kg

DRUGS (2)
  1. AVANDAMET [Suspect]
     Route: 048
     Dates: end: 20071120
  2. AVANDIA [Suspect]
     Indication: DIABETES MELLITUS
     Dosage: 4MG PER DAY
     Route: 048
     Dates: start: 20051001, end: 20071031

REACTIONS (4)
  - CORONARY ARTERY DISEASE [None]
  - CARDIAC FAILURE CONGESTIVE [None]
  - CARDIAC DISORDER [None]
  - MYOCARDIAL INFARCTION [None]
